FAERS Safety Report 4753071-7 (Version None)
Quarter: 2005Q3

REPORT INFORMATION
  Report Type: 
  Country: None (occurrence: None)
  Receive Date: 20050826
  Receipt Date: 20050314
  Transmission Date: 20060218
  Serious: Yes (Hospitalization)
  Sender: FDA-Public Use
  Company Number: US-MERCK-0503USA02878

PATIENT
  Age: 62 Year
  Sex: Male
  Weight: 108 kg

DRUGS (7)
  1. VIOXX [Suspect]
     Indication: ARTHRITIS
     Route: 048
     Dates: start: 20000101, end: 20040901
  2. VIOXX [Suspect]
     Route: 048
     Dates: start: 20000101, end: 20040901
  3. VIOXX [Suspect]
     Indication: GOUT
     Route: 048
     Dates: start: 20000101, end: 20040901
  4. VIOXX [Suspect]
     Route: 048
     Dates: start: 20000101, end: 20040901
  5. GLYBURIDE [Concomitant]
     Route: 065
  6. TYLENOL [Concomitant]
     Indication: PAIN
     Route: 065
  7. COLCHICINE [Concomitant]
     Route: 065

REACTIONS (7)
  - ATHEROSCLEROSIS [None]
  - CEREBROVASCULAR ACCIDENT [None]
  - CHEST PAIN [None]
  - GOUT [None]
  - NEOPLASM MALIGNANT [None]
  - PROSTATIC DISORDER [None]
  - TRANSIENT ISCHAEMIC ATTACK [None]
